FAERS Safety Report 21327978 (Version 1)
Quarter: 2022Q3

REPORT INFORMATION
  Report Type: Spontaneous
  Country: CZ (occurrence: CZ)
  Receive Date: 20220913
  Receipt Date: 20220913
  Transmission Date: 20221027
  Serious: Yes (Life-Threatening, Hospitalization, Disabling, Other)
  Sender: FDA-Public Use
  Company Number: None

PATIENT
  Age: 76 Year
  Sex: Male
  Weight: 79 kg

DRUGS (2)
  1. YERVOY [Suspect]
     Active Substance: IPILIMUMAB
     Indication: Malignant melanoma
     Dosage: INITIALLY, A REGIMEN OF IPILIMUMAB 3 MG/KG + NIVOLUMAB 1 MG/KG (I.E. 246 MG IPILIMUMAB + 82 MG NIVOL
     Route: 042
     Dates: start: 20220321, end: 20220614
  2. OPDIVO [Suspect]
     Active Substance: NIVOLUMAB
     Indication: Malignant melanoma
     Dosage: INITIALLY, A REGIMEN OF IPILIMUMAB 3 MG/KG + NIVOLUMAB 1 MG/KG (I.E. 246 MG IPILIMUMAB + 82 MG NIVOL
     Route: 042
     Dates: start: 20220321, end: 20220722

REACTIONS (8)
  - Hyponatraemia [Not Recovered/Not Resolved]
  - Hypoalbuminaemia [Not Recovered/Not Resolved]
  - Immobile [Unknown]
  - Asthenia [Unknown]
  - Lymphocytic hypophysitis [Not Recovered/Not Resolved]
  - Hypokalaemia [Not Recovered/Not Resolved]
  - Pain [Unknown]
  - Intentional product use issue [Unknown]

NARRATIVE: CASE EVENT DATE: 20220803
